FAERS Safety Report 9922319 (Version 7)
Quarter: 2015Q1

REPORT INFORMATION
  Report Type: Spontaneous
  Country: US (occurrence: US)
  Receive Date: 20140225
  Receipt Date: 20150330
  Transmission Date: 20150721
  Serious: Yes (Hospitalization)
  Sender: FDA-Public Use
  Company Number: US-ACTELION-A-NJ2014-95326

PATIENT
  Age: 73 Year
  Sex: Female

DRUGS (2)
  1. VENTAVIS [Suspect]
     Active Substance: ILOPROST
     Indication: PULMONARY ARTERIAL HYPERTENSION
     Dosage: 5 MCG, 6-9X/DAY
     Route: 055
     Dates: start: 20050805
  2. VIAGRA [Concomitant]
     Active Substance: SILDENAFIL CITRATE

REACTIONS (6)
  - Gastrointestinal stoma complication [Unknown]
  - Fluid retention [Unknown]
  - Colectomy [Recovering/Resolving]
  - Colitis ulcerative [Recovering/Resolving]
  - Large intestine perforation [Recovering/Resolving]
  - Gastrointestinal surgery [Unknown]
